FAERS Safety Report 13207053 (Version 1)
Quarter: 2017Q1

REPORT INFORMATION
  Report Type: Spontaneous
  Country: US (occurrence: US)
  Receive Date: 20170209
  Receipt Date: 20170209
  Transmission Date: 20170428
  Serious: Yes (Disabling)
  Sender: FDA-Public Use
  Company Number: None

PATIENT
  Age: 45 Year
  Sex: Female
  Weight: 108 kg

DRUGS (11)
  1. VIT K2 [Concomitant]
  2. MAGNESIUM [Concomitant]
     Active Substance: MAGNESIUM
  3. VITAMIN C [Concomitant]
     Active Substance: ASCORBIC ACID
  4. VITAMIN E [Concomitant]
     Active Substance: .ALPHA.-TOCOPHEROL
  5. LYSINE [Concomitant]
     Active Substance: LYSINE
  6. CIPRO [Suspect]
     Active Substance: CIPROFLOXACIN HYDROCHLORIDE
     Indication: POST PROCEDURAL INFECTION
     Dosage: ?          QUANTITY:1 CAPSULE(S);?
     Route: 048
     Dates: start: 20161229, end: 20170108
  7. LEVOTHYROXIN [Concomitant]
     Active Substance: LEVOTHYROXINE
  8. GINKO BILOBA [Concomitant]
     Active Substance: GINKGO
  9. BIOFLAVONOID [Concomitant]
  10. LISINOPRIL. [Concomitant]
     Active Substance: LISINOPRIL
  11. VITAMIN D3 [Concomitant]
     Active Substance: CHOLECALCIFEROL

REACTIONS (3)
  - Muscular weakness [None]
  - Tendon disorder [None]
  - Myalgia [None]

NARRATIVE: CASE EVENT DATE: 20170103
